FAERS Safety Report 7012998-6 (Version None)
Quarter: 2010Q3

REPORT INFORMATION
  Report Type: 
  Country: None (occurrence: None)
  Receive Date: 20100924
  Receipt Date: 20100916
  Transmission Date: 20110219
  Serious: Yes (Other)
  Sender: FDA-Public Use
  Company Number: US-AMGEN-KDL439100

PATIENT
  Sex: Male

DRUGS (1)
  1. ENBREL [Suspect]
     Indication: PSORIASIS
     Route: 058

REACTIONS (8)
  - ANORECTAL DISCOMFORT [None]
  - CHEST X-RAY ABNORMAL [None]
  - FUNGAL RHINITIS [None]
  - FUNGAL SKIN INFECTION [None]
  - HEPATIC MASS [None]
  - INFLUENZA LIKE ILLNESS [None]
  - PAIN [None]
  - RENAL DISORDER [None]
